FAERS Safety Report 7051408-X (Version None)
Quarter: 2010Q4

REPORT INFORMATION
  Report Type: 
  Country: None (occurrence: None)
  Receive Date: 20101014
  Receipt Date: 20100927
  Transmission Date: 20110411
  Serious: Yes (Hospitalization)
  Sender: FDA-Public Use
  Company Number: 2010004226

PATIENT
  Age: 63 Year
  Sex: Male

DRUGS (3)
  1. ERLOTINIB (ERLOTINB) (TABLET) (ERLOTINIB) [Suspect]
     Indication: PANCREATIC CARCINOMA METASTATIC
     Dosage: (100 MG,QD),ORAL
     Route: 048
     Dates: start: 20100706
  2. GEMCITABINE HYDROCHLORIDE [Suspect]
     Indication: PANCREATIC CARCINOMA METASTATIC
     Dosage: (1000 MG/M2,DAYS 1, 8 AND 15),INTRAVENOUS
     Route: 042
     Dates: start: 20100706
  3. PANITUMUMAB [Suspect]
     Indication: PANCREATIC CARCINOMA METASTATIC
     Dosage: (4 MG/KG),INTRAVENOUS
     Route: 042
     Dates: start: 20100706

REACTIONS (8)
  - ASTHENIA [None]
  - CHILLS [None]
  - DECREASED APPETITE [None]
  - DYSPNOEA [None]
  - HEADACHE [None]
  - HYPERTENSION [None]
  - NAUSEA [None]
  - PRODUCTIVE COUGH [None]
